FAERS Safety Report 7691003-2 (Version None)
Quarter: 2011Q3

REPORT INFORMATION
  Report Type: 
  Country: None (occurrence: None)
  Receive Date: 20110818
  Receipt Date: 20110812
  Transmission Date: 20111222
  Serious: Yes (Hospitalization, Other)
  Sender: FDA-Public Use
  Company Number: FR-ROCHE-765966

PATIENT
  Sex: Female
  Weight: 37.5 kg

DRUGS (23)
  1. ACETAMINOPHEN [Concomitant]
     Dosage: TDD: UK
     Dates: start: 20110309
  2. PHOSPHONEUROS [Concomitant]
     Dates: start: 20110506
  3. PREDNISOLONE [Concomitant]
     Dates: start: 20110309, end: 20110315
  4. IFOSFAMIDE [Suspect]
     Indication: SARCOMA METASTATIC
     Dosage: FREQUENCY: DAY 1- DAY 2. DOSAGE FORM: 3 GR/M2.LAST DOSE PRIOR TO SAE: 12 JULY 2011
     Route: 042
     Dates: start: 20110302
  5. TRAMADOL HCL [Concomitant]
     Dates: start: 20110309, end: 20110313
  6. FORLAX [Concomitant]
     Dates: start: 20110302
  7. ORANOR [Concomitant]
     Dosage: TDD: 4 DROPSX 6/ DAY
     Dates: start: 20110312, end: 20110402
  8. TRANXENE [Concomitant]
     Dates: start: 20110312, end: 20110312
  9. ZOLOFT [Concomitant]
     Dates: start: 20110616
  10. DACTINOMYCIN [Suspect]
     Indication: SARCOMA METASTATIC
     Dosage: DOSAGE FORM: 1.5MG/M2. LAST DOSE PRIOR TO SAE: 11 JULY 2011
     Route: 042
     Dates: start: 20110302
  11. FOLEX [Concomitant]
     Dosage: TOTAL DAILY DOSE: 4 SACHETS
     Dates: start: 20110302
  12. LOVENOX [Concomitant]
     Dates: start: 20110301
  13. FORLAX [Concomitant]
     Dates: start: 20110305
  14. NEURONTIN [Concomitant]
     Dates: start: 20110324
  15. ONDANSERTRON HYDROCHLORIDE [Concomitant]
     Dates: start: 20110302
  16. LANSOPRAZOLE [Concomitant]
     Dates: start: 20110408
  17. BEVACIZUMAB [Suspect]
     Indication: SARCOMA METASTATIC
     Dosage: FREQUENCY: DAY 1. DOSAGE FORM: 7.5 MG/KG.LAST DOSE PRIOR TO SAE: 11 JULY 2011
     Route: 042
     Dates: start: 20110302
  18. VINCRISTINE [Suspect]
     Indication: SARCOMA METASTATIC
     Dosage: C1, C2, C3. FORM: 1.5 MG/M2.LAST DOSE PRIOR TO SAE: 11 JULY 2011
     Route: 042
     Dates: start: 20110302
  19. NORDETTE-21 [Concomitant]
     Dosage: DOSE: 1CP DAILY
     Dates: start: 20110303
  20. CLONAZEPAM [Concomitant]
     Dosage: TDD: 12 DROPS
     Dates: start: 20110305
  21. DOXORUBICIN HCL [Suspect]
     Indication: SARCOMA METASTATIC
     Dosage: FREQUENCY: DAY 1 AND DAY 2. DOSAGE FORM: 30 MG/M2.
     Route: 042
     Dates: start: 20110302
  22. ZOVIRAX [Concomitant]
     Dates: start: 20110314
  23. ANDROCUR [Concomitant]
     Dosage: TOTAL DAILY DOSE: 1/2CP
     Dates: start: 20110518

REACTIONS (5)
  - MUCOSAL INFLAMMATION [None]
  - WEIGHT DECREASED [None]
  - FEBRILE BONE MARROW APLASIA [None]
  - FEBRILE NEUTROPENIA [None]
  - VOMITING [None]
